FAERS Safety Report 6249981-4 (Version None)
Quarter: 2009Q2

REPORT INFORMATION
  Report Type: 
  Country: None (occurrence: None)
  Receive Date: 20090625
  Receipt Date: 20090615
  Transmission Date: 20091009
  Serious: Yes (Hospitalization)
  Sender: FDA-Public Use
  Company Number: 304394

PATIENT
  Age: 66 Year
  Sex: Female

DRUGS (13)
  1. LEUCOVORIN CALCIUM [Suspect]
     Indication: COLON CANCER
     Dosage: INTRAVENOUS (NOT OTHERWISE SPECIFIED)
     Route: 042
     Dates: start: 20090126
  2. FLUOROURACIL [Suspect]
     Indication: COLON CANCER
     Dosage: UNKNOWN, UNKNOWN, INTRAVENOUS (NOT OTHERWISE SPECIFIED)
     Route: 042
     Dates: start: 20090126
  3. ELOXATIN [Suspect]
     Indication: COLON CANCER
     Dosage: UNKNOWN, UNKNOWN, INTRAVENOUS (NOT OTHERWISE SPECIFIED)
     Route: 042
     Dates: start: 20090126, end: 20090427
  4. ALTACE [Concomitant]
  5. CARDIZEM [Concomitant]
  6. CELEXA [Concomitant]
  7. LORTAB [Concomitant]
  8. JANUVIA [Concomitant]
  9. LOPRESSOR [Concomitant]
  10. METFORMIN [Concomitant]
  11. SYNTHROID [Concomitant]
  12. XANAX [Concomitant]
  13. ZOCOR [Concomitant]

REACTIONS (4)
  - DYSPNOEA [None]
  - FLUSHING [None]
  - OXYGEN SATURATION DECREASED [None]
  - PRURITUS [None]
